FAERS Safety Report 18024683 (Version 1)
Quarter: 2020Q3

REPORT INFORMATION
  Report Type: Spontaneous
  Country: US (occurrence: US)
  Receive Date: 20200715
  Receipt Date: 20200715
  Transmission Date: 20201103
  Serious: Yes (Death)
  Sender: FDA-Public Use
  Company Number: None

PATIENT
  Age: 77 Year
  Sex: Female

DRUGS (1)
  1. MATULANE [Suspect]
     Active Substance: PROCARBAZINE HYDROCHLORIDE
     Indication: HODGKIN^S DISEASE
     Dosage: ?          OTHER FREQUENCY:FOR 14 CONSECUTIVE?
     Route: 048
     Dates: start: 20200505, end: 20200711

REACTIONS (1)
  - Death [None]

NARRATIVE: CASE EVENT DATE: 20200711
